FAERS Safety Report 15270756 (Version 1)
Quarter: 2018Q3

REPORT INFORMATION
  Report Type: Not Available
  Country: US (occurrence: US)
  Receive Date: 20180813
  Receipt Date: 20180813
  Transmission Date: 20181010
  Serious: No
  Sender: FDA-Public Use
  Company Number: US-NEUROCRINE BIOSCIENCES INC.-2018NBI02268

PATIENT
  Sex: Female

DRUGS (9)
  1. GEODON [Concomitant]
     Active Substance: ZIPRASIDONE HYDROCHLORIDE\ZIPRASIDONE MESYLATE
  2. INGREZZA [Suspect]
     Active Substance: VALBENAZINE
     Indication: TARDIVE DYSKINESIA
     Route: 048
     Dates: start: 20180531, end: 20180724
  3. CLARITIN [Concomitant]
     Active Substance: LORATADINE
  4. LEVOTHYROXINE SODIUM. [Concomitant]
     Active Substance: LEVOTHYROXINE SODIUM
  5. PREVACID [Concomitant]
     Active Substance: LANSOPRAZOLE
  6. FLONASE [Concomitant]
     Active Substance: FLUTICASONE PROPIONATE
  7. IBUPROFEN. [Concomitant]
     Active Substance: IBUPROFEN
  8. LAMICTAL [Concomitant]
     Active Substance: LAMOTRIGINE
  9. TEGRETOL [Concomitant]
     Active Substance: CARBAMAZEPINE

REACTIONS (2)
  - Heart rate irregular [Unknown]
  - Electrocardiogram QT prolonged [Not Recovered/Not Resolved]

NARRATIVE: CASE EVENT DATE: 2018
